FAERS Safety Report 4423489-0 (Version None)
Quarter: 2004Q3

REPORT INFORMATION
  Report Type: 
  Country: None (occurrence: None)
  Receive Date: 20040713
  Receipt Date: 20040408
  Transmission Date: 20050211
  Serious: No
  Sender: FDA-Public Use
  Company Number: PHEH2004US04023

PATIENT
  Age: 51 Year
  Sex: Female

DRUGS (1)
  1. ELIDEL [Suspect]
     Indication: BLEPHARITIS
     Dosage: UNK, QD; TOPICAL
     Route: 061
     Dates: start: 20040407

REACTIONS (2)
  - ACCIDENTAL EXPOSURE [None]
  - EYE IRRITATION [None]
